FAERS Safety Report 7375489-9 (Version None)
Quarter: 2011Q1

REPORT INFORMATION
  Report Type: 
  Country: None (occurrence: None)
  Receive Date: 20110325
  Receipt Date: 20110318
  Transmission Date: 20110831
  Serious: Yes (Other)
  Sender: FDA-Public Use
  Company Number: US-SANOFI-AVENTIS-2011SA017193

PATIENT

DRUGS (3)
  1. ACETYLSALICYLATE LYSINE [Concomitant]
  2. CLOPIDOGREL BISULFATE [Suspect]
     Route: 065
  3. UNFRACTIONATED HEPARIN [Concomitant]

REACTIONS (2)
  - CARDIOGENIC SHOCK [None]
  - MYOCARDIAL INFARCTION [None]
